FAERS Safety Report 16514114 (Version 7)
Quarter: 2023Q4

REPORT INFORMATION
  Report Type: Spontaneous
  Country: CA (occurrence: CA)
  Receive Date: 20190701
  Receipt Date: 20231024
  Transmission Date: 20240110
  Serious: Yes (Other)
  Sender: FDA-Public Use
  Company Number: CA-CELLTRION INC.-2019CA021522

PATIENT

DRUGS (13)
  1. INFLECTRA [Suspect]
     Active Substance: INFLIXIMAB-DYYB
     Indication: Rheumatoid arthritis
     Dosage: 200 MG, EVERY 0, 2, 6 WEEKS THEN EVERY 8 WEEKS
     Route: 042
     Dates: start: 20190122, end: 20190307
  2. INFLECTRA [Suspect]
     Active Substance: INFLIXIMAB-DYYB
     Dosage: 300 MG, EVERY 8 WEEKS
     Route: 042
     Dates: start: 20190502
  3. INFLECTRA [Suspect]
     Active Substance: INFLIXIMAB-DYYB
     Dosage: 300 MG, EVERY 8 WEEKS
     Route: 042
     Dates: start: 20200421
  4. AZATHIOPRINE [Concomitant]
     Active Substance: AZATHIOPRINE
     Dosage: 100 MG, UNK
  5. FOLIC ACID [Concomitant]
     Active Substance: FOLIC ACID
     Dosage: 5 MG, 1X/DAY (EXCEPT THE DAY PATIENT HAS METHOTREXATE)
     Route: 048
  6. HYDROXYCHLOROQUINE [Concomitant]
     Active Substance: HYDROXYCHLOROQUINE
     Dosage: UNK
  7. METHOTREXATE [Concomitant]
     Active Substance: METHOTREXATE
     Indication: Rheumatoid arthritis
     Dosage: 30 MG, WEEKLY
     Route: 058
  8. METHOTREXATE [Concomitant]
     Active Substance: METHOTREXATE
     Dosage: 25 MG PER ML, WEEKLY
     Route: 058
     Dates: start: 2000
  9. METHOTREXATE [Concomitant]
     Active Substance: METHOTREXATE
     Dosage: 30MG WEEKLY
     Route: 058
  10. METHOTREXATE [Concomitant]
     Active Substance: METHOTREXATE
     Dosage: UNK
     Route: 048
  11. METHOTREXATE [Concomitant]
     Active Substance: METHOTREXATE
     Dosage: 0.80 ML, WEEKLY
     Route: 058
  12. METHOTREXATE [Concomitant]
     Active Substance: METHOTREXATE
     Dosage: 30MG WEEKLY
     Route: 058
     Dates: start: 2000
  13. METHOTREXATE [Concomitant]
     Active Substance: METHOTREXATE
     Dosage: 20 MG WEEKLY
     Route: 065

REACTIONS (8)
  - Weight decreased [Recovered/Resolved]
  - Therapeutic response shortened [Unknown]
  - Weight increased [Unknown]
  - Condition aggravated [Unknown]
  - Joint swelling [Unknown]
  - Off label use [Unknown]
  - Off label use [Unknown]
  - Intentional product use issue [Unknown]

NARRATIVE: CASE EVENT DATE: 20200611
